FAERS Safety Report 8690040 (Version 2)
Quarter: 2013Q2

REPORT INFORMATION
  Report Type: Spontaneous
  Country: US (occurrence: US)
  Receive Date: 20120727
  Receipt Date: 20130507
  Transmission Date: 20140414
  Serious: Yes (Life-Threatening, Other)
  Sender: FDA-Public Use
  Company Number: US-ASTRAZENECA-2012SE10506

PATIENT
  Age: 44 Year
  Sex: Female

DRUGS (6)
  1. SEROQUEL [Suspect]
     Indication: SLEEP DISORDER
     Route: 048
  2. SEROQUEL [Suspect]
     Indication: ANXIETY
     Route: 048
  3. SEROQUEL [Suspect]
     Indication: SLEEP DISORDER
     Route: 048
  4. SEROQUEL [Suspect]
     Indication: ANXIETY
     Route: 048
  5. SEROQUEL [Suspect]
     Indication: SLEEP DISORDER
     Route: 048
  6. SEROQUEL [Suspect]
     Indication: ANXIETY
     Route: 048

REACTIONS (8)
  - Suicidal ideation [Unknown]
  - Irritability [Unknown]
  - Feeling abnormal [Unknown]
  - Malaise [Unknown]
  - Insomnia [Unknown]
  - Dissociation [Unknown]
  - Tremor [Unknown]
  - Drug dose omission [Unknown]
